FAERS Safety Report 15612753 (Version 1)
Quarter: 2018Q4

REPORT INFORMATION
  Report Type: Spontaneous
  Country: IT (occurrence: IT)
  Receive Date: 20181113
  Receipt Date: 20181113
  Transmission Date: 20190205
  Serious: Yes (Life-Threatening, Hospitalization)
  Sender: FDA-Public Use
  Company Number: IT-MYLANLABS-2018M1085669

PATIENT
  Age: 49 Year
  Sex: Male

DRUGS (9)
  1. VANCOMYCIN [Suspect]
     Active Substance: VANCOMYCIN
     Indication: CLOSTRIDIUM DIFFICILE INFECTION
     Route: 048
  2. FIDAXOMICIN [Concomitant]
     Active Substance: FIDAXOMICIN
     Indication: CLOSTRIDIUM DIFFICILE INFECTION
     Route: 048
  3. TIGECYCLINE. [Suspect]
     Active Substance: TIGECYCLINE
     Indication: PNEUMONIA KLEBSIELLA
     Dosage: LOADING DOSE
     Route: 042
  4. COLISTIN [Suspect]
     Active Substance: COLISTIN
     Indication: PNEUMONIA KLEBSIELLA
     Dosage: DOSE: 2 MU
     Route: 055
  5. TIGECYCLINE. [Suspect]
     Active Substance: TIGECYCLINE
     Dosage: 100 MG, UNK
     Route: 042
  6. FOSFOMYCIN [Suspect]
     Active Substance: FOSFOMYCIN
     Indication: KLEBSIELLA BACTERAEMIA
     Route: 042
  7. COLISTIN [Suspect]
     Active Substance: COLISTIN
     Indication: PNEUMONIA KLEBSIELLA
     Dosage: LOADING DOSE: 9 MU
     Route: 042
  8. COLISTIN [Suspect]
     Active Substance: COLISTIN
     Dosage: 4.5 MU
     Route: 042
  9. MEROPENEM. [Suspect]
     Active Substance: MEROPENEM
     Indication: PNEUMONIA KLEBSIELLA
     Route: 041

REACTIONS (1)
  - Drug ineffective [Unknown]
